FAERS Safety Report 5633558-5 (Version None)
Quarter: 2008Q1

REPORT INFORMATION
  Report Type: 
  Country: None (occurrence: None)
  Receive Date: 20080221
  Receipt Date: 20080209
  Transmission Date: 20080703
  Serious: Yes (Other)
  Sender: FDA-Public Use
  Company Number: US-PFIZER INC-2008013294

PATIENT
  Sex: Female
  Weight: 59.1 kg

DRUGS (5)
  1. CHANTIX [Suspect]
     Indication: SMOKING CESSATION THERAPY
     Dates: start: 20080101, end: 20080209
  2. CARDIZEM [Concomitant]
  3. FLEXERIL [Concomitant]
     Indication: TEMPOROMANDIBULAR JOINT SYNDROME
  4. TEMAZEPAM [Concomitant]
  5. CYMBALTA [Concomitant]
     Indication: HYPOPITUITARISM

REACTIONS (7)
  - ABDOMINAL PAIN UPPER [None]
  - ANGER [None]
  - CRYING [None]
  - DEPRESSION [None]
  - SUICIDAL IDEATION [None]
  - UNEVALUABLE EVENT [None]
  - URINARY TRACT INFECTION [None]
